FAERS Safety Report 11219775 (Version 4)
Quarter: 2016Q1

REPORT INFORMATION
  Report Type: Spontaneous
  Country: US (occurrence: US)
  Receive Date: 20150625
  Receipt Date: 20160128
  Transmission Date: 20160525
  Serious: Yes (Life-Threatening, Hospitalization, Other)
  Sender: FDA-Public Use
  Company Number: US-PFIZER INC-2015207865

PATIENT
  Age: 70 Year
  Sex: Female
  Weight: 100 kg

DRUGS (8)
  1. LORTAB [Concomitant]
     Active Substance: ACETAMINOPHEN\HYDROCODONE BITARTRATE
     Indication: PAIN
  2. REVATIO [Suspect]
     Active Substance: SILDENAFIL CITRATE
     Indication: PULMONARY HYPERTENSION
     Dosage: 20 MG, 3X/DAY
     Route: 048
     Dates: start: 2012
  3. LASIX [Concomitant]
     Active Substance: FUROSEMIDE
     Indication: PLEURAL EFFUSION
     Dosage: 40 MG, 1X/DAY
     Dates: start: 2011
  4. REVATIO [Suspect]
     Active Substance: SILDENAFIL CITRATE
     Dosage: 2 A DAY
     Dates: start: 201511
  5. LORTAB [Concomitant]
     Active Substance: ACETAMINOPHEN\HYDROCODONE BITARTRATE
     Indication: LYMPHOEDEMA
     Dosage: 5 MG, 2X/DAY
     Dates: start: 2013
  6. OXYGEN. [Concomitant]
     Active Substance: OXYGEN
     Dosage: UNK
  7. LORTAB [Concomitant]
     Active Substance: ACETAMINOPHEN\HYDROCODONE BITARTRATE
     Indication: NERVE INJURY
  8. LASIX [Concomitant]
     Active Substance: FUROSEMIDE
     Indication: LYMPHOEDEMA

REACTIONS (8)
  - Drug dose omission [Unknown]
  - Dyspnoea [Unknown]
  - Intentional product misuse [Not Recovered/Not Resolved]
  - Sepsis [Unknown]
  - Oxygen saturation decreased [Unknown]
  - Memory impairment [Unknown]
  - Infected cyst [Not Recovered/Not Resolved]
  - Fungal infection [Unknown]

NARRATIVE: CASE EVENT DATE: 2015
